FAERS Safety Report 5879768-3 (Version None)
Quarter: 2008Q3

REPORT INFORMATION
  Report Type: 
  Country: None (occurrence: None)
  Receive Date: 20080911
  Receipt Date: 20080911
  Transmission Date: 20090109
  Serious: Yes (Death, Disabling, Other)
  Sender: FDA-Public Use
  Company Number: None

PATIENT
  Age: 69 Year
  Sex: Male
  Weight: 85.2762 kg

DRUGS (1)
  1. DIGITEK ACTIVAS/AMIDE [Suspect]
     Dosage: DAILY PO
     Route: 048

REACTIONS (7)
  - ARRHYTHMIA [None]
  - CARDIAC DISORDER [None]
  - EPISTAXIS [None]
  - GENERAL PHYSICAL HEALTH DETERIORATION [None]
  - PHARMACEUTICAL PRODUCT COMPLAINT [None]
  - PLATELET COUNT ABNORMAL [None]
  - VENTRICULAR EXTRASYSTOLES [None]
